FAERS Safety Report 6504749-6 (Version None)
Quarter: 2009Q4

REPORT INFORMATION
  Report Type: 
  Country: None (occurrence: None)
  Receive Date: 20091210
  Receipt Date: 20091203
  Transmission Date: 20100525
  Serious: Yes (Life-Threatening)
  Sender: FDA-Public Use
  Company Number: 450210

PATIENT
  Age: 2 Year
  Sex: Female

DRUGS (5)
  1. PROPOFOL [Suspect]
     Indication: INDUCTION OF ANAESTHESIA
     Dosage: INTRAVENOUS
     Route: 042
  2. ATRACURIUM BESYLATE [Concomitant]
  3. DEXTROSE [Concomitant]
  4. SEVOFLURANE [Concomitant]
  5. FENTANYL-100 [Concomitant]

REACTIONS (2)
  - HYPOTENSION [None]
  - HYPOVOLAEMIA [None]
